FAERS Safety Report 6975224-X (Version None)
Quarter: 2010Q3

REPORT INFORMATION
  Report Type: 
  Country: None (occurrence: None)
  Receive Date: 20100910
  Receipt Date: 20100907
  Transmission Date: 20110219
  Serious: Yes (Hospitalization)
  Sender: FDA-Public Use
  Company Number: FR-SP-E2010-05160

PATIENT
  Sex: Female

DRUGS (6)
  1. TUBERSOL [Suspect]
     Indication: TUBERCULIN TEST
     Route: 023
     Dates: start: 20100726, end: 20100726
  2. ENGERIX-B [Suspect]
     Indication: IMMUNISATION
     Route: 058
     Dates: start: 20100726, end: 20100726
  3. EFFEXOR [Concomitant]
  4. PROPANOLOL (CHLORHYDRATE PROPANOLOL) [Concomitant]
  5. BUFLOMEDIL [Concomitant]
  6. ANTADYS (FLURBIPROFENE) [Concomitant]

REACTIONS (3)
  - DEEP VEIN THROMBOSIS [None]
  - PHLEBITIS [None]
  - THROMBOPHLEBITIS SUPERFICIAL [None]
